FAERS Safety Report 10167236 (Version 1)
Quarter: 2014Q2

REPORT INFORMATION
  Report Type: Spontaneous
  Country: US (occurrence: US)
  Receive Date: 20140512
  Receipt Date: 20140512
  Transmission Date: 20141212
  Serious: Yes (Hospitalization, Other)
  Sender: FDA-Public Use
  Company Number: US-BAYER-2014-067753

PATIENT
  Age: 33 Year
  Sex: Female
  Weight: 110.66 kg

DRUGS (14)
  1. YAZ [Suspect]
  2. YASMIN [Suspect]
  3. OCELLA [Suspect]
  4. CLONAZEPAM [Concomitant]
     Dosage: 0.5 MG, UNK
     Dates: start: 20101102
  5. ALDOMET [Concomitant]
     Indication: HYPERTENSION
  6. AMLODIPINE [Concomitant]
     Dosage: 10 MG, UNK
  7. BACLOFEN [Concomitant]
     Dosage: 10 MG, UNK
  8. CARBIDOPA W/LEVODOPA [Concomitant]
     Dosage: 10/100 MG
  9. FOLIC ACID [Concomitant]
     Dosage: 1 MG, UNK
  10. HYDROCHLOROTHIAZIDE [Concomitant]
     Dosage: 25 MG, UNK
  11. OMEPRAZOLE [Concomitant]
     Dosage: 20 MG, UNK
  12. PENTAZOCINE [Concomitant]
     Indication: PAIN
     Dosage: 50 MG, UNK
  13. SERTRALINE [Concomitant]
     Dosage: 100 MG, UNK
  14. VANCOMYCIN [Concomitant]

REACTIONS (2)
  - Pulmonary embolism [Recovered/Resolved]
  - Thrombophlebitis superficial [None]
